FAERS Safety Report 4341037-0 (Version None)
Quarter: 2004Q2

REPORT INFORMATION
  Report Type: 
  Country: None (occurrence: None)
  Receive Date: 20040419
  Receipt Date: 20040225
  Transmission Date: 20050107
  Serious: Yes (Life-Threatening, Hospitalization, Other)
  Sender: FDA-Public Use
  Company Number: US-MERCK-0402USA01910

PATIENT
  Age: 53 Year
  Sex: Male
  Weight: 86 kg

DRUGS (10)
  1. DILTIAZEM HYDROCHLORIDE [Concomitant]
     Route: 065
  2. NOVOLOG [Concomitant]
     Route: 065
  3. LANTUS [Concomitant]
     Route: 065
  4. LEVOTHYROXINE SODIUM [Concomitant]
     Route: 065
  5. COZAAR [Suspect]
     Indication: HYPERTENSION
     Route: 048
     Dates: end: 20040201
  6. COZAAR [Suspect]
     Indication: DIABETIC NEPHROPATHY
     Route: 048
     Dates: end: 20040201
  7. MECLIZINE [Concomitant]
     Indication: DIZZINESS
     Route: 065
  8. NITROGLYCERIN [Concomitant]
     Route: 065
  9. COMPAZINE [Concomitant]
     Indication: NAUSEA
     Route: 065
  10. ZOCOR [Concomitant]
     Route: 048

REACTIONS (21)
  - ACIDOSIS [None]
  - ACUTE PULMONARY OEDEMA [None]
  - BACK PAIN [None]
  - BLOOD CREATININE INCREASED [None]
  - BLOOD SODIUM INCREASED [None]
  - BLOOD THYROID STIMULATING HORMONE INCREASED [None]
  - BLOOD UREA INCREASED [None]
  - CARDIOMEGALY [None]
  - DEHYDRATION [None]
  - DIABETES MELLITUS INADEQUATE CONTROL [None]
  - DIABETIC KETOACIDOSIS [None]
  - DIZZINESS [None]
  - ELECTROCARDIOGRAM ABNORMAL [None]
  - FALL [None]
  - HAEMATOCRIT DECREASED [None]
  - HAEMOGLOBIN DECREASED [None]
  - HYPERAEMIA [None]
  - HYPERKALAEMIA [None]
  - LEUKOCYTOSIS [None]
  - LIVER FUNCTION TEST ABNORMAL [None]
  - LYMPHOCYTOSIS [None]
